FAERS Safety Report 10483146 (Version 6)
Quarter: 2015Q2

REPORT INFORMATION
  Report Type: Report from Study
  Country: CA (occurrence: CA)
  Receive Date: 20140930
  Receipt Date: 20150604
  Transmission Date: 20150821
  Serious: Yes (Hospitalization, Other)
  Sender: FDA-Public Use
  Company Number: CA-ROCHE-1360326

PATIENT
  Age: 42 Year
  Sex: Female

DRUGS (8)
  1. METHOTREXATE [Concomitant]
     Active Substance: METHOTREXATE
     Route: 065
  2. METHYLPREDNISOLONE. [Concomitant]
     Active Substance: METHYLPREDNISOLONE
     Route: 042
     Dates: start: 20140218
  3. RITUXAN [Suspect]
     Active Substance: RITUXIMAB
     Dosage: LAST DOSE DATE PRIOR TO RITUXIMAB 12/DEC/2014.
     Route: 042
     Dates: start: 20140310
  4. RITUXAN [Suspect]
     Active Substance: RITUXIMAB
     Indication: RHEUMATOID ARTHRITIS
     Route: 042
     Dates: start: 20140218
  5. DIPHENHYDRAMINE HCL [Concomitant]
     Active Substance: DIPHENHYDRAMINE HYDROCHLORIDE
     Route: 048
     Dates: start: 20140218
  6. ACETAMINOPHEN. [Concomitant]
     Active Substance: ACETAMINOPHEN
     Route: 048
     Dates: start: 20140218
  7. FOLIC ACID. [Concomitant]
     Active Substance: FOLIC ACID
     Indication: PRODUCT USED FOR UNKNOWN INDICATION
  8. FERROUS SULFATE [Concomitant]
     Active Substance: FERROUS SULFATE\FERROUS SULFATE, DRIED
     Indication: PRODUCT USED FOR UNKNOWN INDICATION

REACTIONS (10)
  - Electrolyte imbalance [Unknown]
  - Gastroenteritis viral [Recovered/Resolved]
  - Dry eye [Unknown]
  - Infusion related reaction [Recovered/Resolved]
  - Lower respiratory tract infection viral [Recovering/Resolving]
  - Cataract [Unknown]
  - Eye infection [Not Recovered/Not Resolved]
  - Cough [Recovered/Resolved]
  - Appendix disorder [Unknown]
  - Oropharyngeal pain [Recovered/Resolved]

NARRATIVE: CASE EVENT DATE: 20140303
